FAERS Safety Report 10276877 (Version 1)
Quarter: 2014Q3

REPORT INFORMATION
  Report Type: Report from Study
  Country: BR (occurrence: BR)
  Receive Date: 20140703
  Receipt Date: 20140703
  Transmission Date: 20150326
  Serious: Yes (Other)
  Sender: FDA-Public Use
  Company Number: BR-SA-2014SA085051

PATIENT
  Sex: Female

DRUGS (1)
  1. FABRAZYME [Suspect]
     Active Substance: AGALSIDASE BETA
     Indication: FABRY^S DISEASE
     Route: 042
     Dates: start: 201310

REACTIONS (7)
  - Hepatitis C [Not Recovered/Not Resolved]
  - Hypertension [Not Recovered/Not Resolved]
  - Alopecia [Unknown]
  - Cardiac disorder [Not Recovered/Not Resolved]
  - Fatigue [Unknown]
  - Anaemia [Unknown]
  - Pain in extremity [Unknown]
